FAERS Safety Report 24380198 (Version 1)
Quarter: 2024Q3

REPORT INFORMATION
  Report Type: Spontaneous
  Country: US (occurrence: US)
  Receive Date: 20240930
  Receipt Date: 20240930
  Transmission Date: 20241016
  Serious: No
  Sender: SANDOZ
  Company Number: US-002147023-NVSC2023US099465

PATIENT
  Sex: Female

DRUGS (1)
  1. LATANOPROST [Suspect]
     Active Substance: LATANOPROST
     Indication: Product used for unknown indication
     Dosage: 0.005 %, QD (1XNIGHT) (THREE WEEKS, ENDED ABOUT ONE MONTH AGO)
     Route: 047

REACTIONS (5)
  - Lacrimation increased [Unknown]
  - Eye pruritus [Unknown]
  - Growth of eyelashes [Unknown]
  - Eyelash thickening [Unknown]
  - Iris hyperpigmentation [Unknown]
